FAERS Safety Report 9980188 (Version 1)
Quarter: 2014Q1

REPORT INFORMATION
  Report Type: Report from Study
  Country: US (occurrence: US)
  Receive Date: 20140307
  Receipt Date: 20140307
  Transmission Date: 20141002
  Serious: No
  Sender: FDA-Public Use
  Company Number: US-ABBVIE-13P-163-1174598-00

PATIENT
  Age: 36 Year
  Sex: Female

DRUGS (7)
  1. HUMIRA [Suspect]
     Indication: COLITIS ULCERATIVE
     Dosage: LOADING DOSE
     Dates: start: 20131011, end: 20131011
  2. HUMIRA [Suspect]
     Dates: start: 20131025, end: 20131025
  3. HUMIRA [Suspect]
     Dates: start: 20131108
  4. LIALDA [Concomitant]
     Indication: COLITIS ULCERATIVE
  5. PREDNISONE [Concomitant]
     Indication: PRODUCT USED FOR UNKNOWN INDICATION
     Dosage: ONE WEEK, FINISHING THE TAPERING OFF
     Dates: start: 201308
  6. PREDNISONE [Concomitant]
     Dosage: FOR ONE WEEK
  7. PREDNISONE [Concomitant]
     Dosage: FOR ONE WEEK

REACTIONS (7)
  - Defaecation urgency [Recovering/Resolving]
  - Energy increased [Unknown]
  - Therapeutic response unexpected [Unknown]
  - Inflammation [Not Recovered/Not Resolved]
  - Polyp [Not Recovered/Not Resolved]
  - Colitis ulcerative [Not Recovered/Not Resolved]
  - Drug ineffective [Not Recovered/Not Resolved]
